FAERS Safety Report 4307964-5 (Version None)
Quarter: 2004Q1

REPORT INFORMATION
  Report Type: 
  Country: None (occurrence: None)
  Receive Date: 20040301
  Receipt Date: 20030206
  Transmission Date: 20041129
  Serious: No
  Sender: FDA-Public Use
  Company Number: US-BRISTOL-MYERS SQUIBB COMPANY-12177754

PATIENT
  Age: 65 Year
  Sex: Female

DRUGS (6)
  1. GLUCOPHAGE [Suspect]
     Indication: DIABETES MELLITUS
     Dosage: DURATION OF THERAPY:  ^2-3 YEARS^
     Route: 048
  2. ACTOS [Concomitant]
  3. PRAVACHOL [Concomitant]
  4. GLYBURIDE [Concomitant]
  5. PRILOSEC [Concomitant]
  6. GEMFIBROZIL [Concomitant]

REACTIONS (2)
  - SKIN ODOUR ABNORMAL [None]
  - URINE ODOUR ABNORMAL [None]
